FAERS Safety Report 20061161 (Version 1)
Quarter: 2021Q4

REPORT INFORMATION
  Report Type: Spontaneous
  Country: IN (occurrence: IN)
  Receive Date: 20211112
  Receipt Date: 20211112
  Transmission Date: 20220303
  Serious: Yes (Other)
  Sender: FDA-Public Use
  Company Number: IN-SUN PHARMACEUTICAL INDUSTRIES LTD-2021R1-317289

PATIENT
  Age: 6 Year
  Sex: Female

DRUGS (3)
  1. DEXAMETHASONE [Suspect]
     Active Substance: DEXAMETHASONE
     Indication: Leukaemia
     Dosage: 10 MILLIGRAM/SQ. METER, DAILY
     Route: 065
  2. DEXAMETHASONE [Suspect]
     Active Substance: DEXAMETHASONE
     Indication: Chemotherapy
  3. ASPARAGINASE [Concomitant]
     Active Substance: ASPARAGINASE
     Indication: Chemotherapy
     Dosage: 10000 U/M2
     Route: 065

REACTIONS (1)
  - Gastropleural fistula [Recovered/Resolved]
